FAERS Safety Report 21516333 (Version 4)
Quarter: 2022Q4

REPORT INFORMATION
  Report Type: Spontaneous
  Country: US (occurrence: US)
  Receive Date: 20221027
  Receipt Date: 20221107
  Transmission Date: 20230113
  Serious: Yes (Other)
  Sender: FDA-Public Use
  Company Number: US-BAUSCH-BL-2022-024059

PATIENT
  Age: 98 Year
  Sex: Male
  Weight: 82.8 kg

DRUGS (19)
  1. ALBUTEROL [Suspect]
     Active Substance: ALBUTEROL
     Indication: Pneumonia
     Dosage: NEBULIZED, STRENGTH- 2.5 MG/3 ML
     Route: 055
     Dates: start: 20220130, end: 20220203
  2. ACETAMINOPHEN [Concomitant]
     Active Substance: ACETAMINOPHEN
     Indication: Product used for unknown indication
     Dosage: EVERY 4 HOURS AS NEEDED
     Route: 048
  3. AMLODIPINE [Concomitant]
     Active Substance: AMLODIPINE BESYLATE
     Indication: Product used for unknown indication
     Route: 048
  4. ASPIRIN [Concomitant]
     Active Substance: ASPIRIN
     Indication: Product used for unknown indication
     Route: 048
  5. BUSPIRONE [Concomitant]
     Active Substance: BUSPIRONE HYDROCHLORIDE
     Indication: Product used for unknown indication
     Route: 048
  6. CARBOXYMETHYLCELLULOSE [Concomitant]
     Active Substance: CARBOXYMETHYLCELLULOSE
     Indication: Product used for unknown indication
     Route: 047
  7. DULOXETINE [Concomitant]
     Active Substance: DULOXETINE
     Indication: Product used for unknown indication
     Route: 048
  8. GABAPENTIN [Concomitant]
     Active Substance: GABAPENTIN
     Indication: Product used for unknown indication
     Route: 048
  9. LEVETIRACETAM [Concomitant]
     Active Substance: LEVETIRACETAM
     Indication: Product used for unknown indication
     Route: 048
  10. LEVOTHYROXINE [Concomitant]
     Active Substance: LEVOTHYROXINE
     Indication: Product used for unknown indication
     Route: 048
  11. MELATONIN [Concomitant]
     Active Substance: MELATONIN
     Indication: Product used for unknown indication
     Dosage: NIGHTLY
     Route: 048
  12. MENTHOL [Concomitant]
     Active Substance: MENTHOL
     Indication: Product used for unknown indication
     Dosage: EXTERNALLY EVERY 6 HOURS AS NEEDED
     Route: 048
  13. ONDANSETRON [Concomitant]
     Active Substance: ONDANSETRON
     Indication: Product used for unknown indication
     Dosage: EVERY 6 HOURS AS NEEDED
     Route: 060
  14. OXYBUTYNIN SR [Concomitant]
     Indication: Product used for unknown indication
     Dosage: NIGHTLY
     Route: 048
  15. POLYETHYLENE GLYCOL [Concomitant]
     Active Substance: POLYETHYLENE GLYCOL
     Indication: Product used for unknown indication
     Dosage: EVERY OTHER DAY
     Route: 048
  16. DOCUSATE SODIUM\SENNOSIDES A AND B [Concomitant]
     Active Substance: DOCUSATE SODIUM\SENNOSIDES A AND B
     Indication: Product used for unknown indication
     Dosage: 8.6/50 MG BY MOUTH DAILY
     Route: 048
  17. TAMSULOSIN [Concomitant]
     Active Substance: TAMSULOSIN
     Indication: Product used for unknown indication
     Route: 048
  18. AZITHROMYCIN [Concomitant]
     Active Substance: AZITHROMYCIN
     Indication: Product used for unknown indication
     Route: 048
  19. CEFTRIAXONE;LIDOCAINE [Concomitant]
     Indication: Product used for unknown indication
     Dosage: 1 G/2.1 ML
     Route: 030

REACTIONS (1)
  - Hallucination, visual [Recovered/Resolved]

NARRATIVE: CASE EVENT DATE: 20220203
